FAERS Safety Report 9349663 (Version 2)
Quarter: 2013Q4

REPORT INFORMATION
  Report Type: Spontaneous
  Country: US (occurrence: US)
  Receive Date: 20130614
  Receipt Date: 20131220
  Transmission Date: 20140711
  Serious: Yes (Death, Hospitalization)
  Sender: FDA-Public Use
  Company Number: US-B.I. PHARMACEUTICALS,INC./RIDGEFIELD-2013-BI-16586BP

PATIENT
  Age: 76 Year
  Sex: Female
  Weight: 71.21 kg

DRUGS (10)
  1. PRADAXA [Suspect]
     Indication: CEREBROVASCULAR ACCIDENT PROPHYLAXIS
     Dosage: 300 MG
     Route: 048
     Dates: start: 201111, end: 20120108
  2. PRADAXA [Suspect]
     Indication: THROMBOSIS PROPHYLAXIS
  3. PRADAXA [Suspect]
     Indication: ATRIAL FIBRILLATION
  4. DIGOXIN [Concomitant]
     Indication: ATRIAL FIBRILLATION
     Dosage: 125 MCG
     Route: 048
  5. ALPRAZOLAM [Concomitant]
     Indication: ANXIETY
     Route: 048
  6. ASPIRIN [Concomitant]
     Dosage: 81 MG
     Route: 048
  7. CHLORTHALIDONE [Concomitant]
     Dosage: 25 MG
     Route: 048
  8. LISINOPRIL [Concomitant]
     Dosage: 40 MG
     Route: 048
  9. METOPROLOL [Concomitant]
     Dosage: 200 MG
     Route: 048
  10. POTASSIUM CHLORIDE [Concomitant]
     Route: 048

REACTIONS (6)
  - Gastrointestinal haemorrhage [Fatal]
  - Syncope [Unknown]
  - Coagulopathy [Unknown]
  - Iron deficiency anaemia [Unknown]
  - Thrombocytopenia [Unknown]
  - Renal failure acute [Unknown]
